FAERS Safety Report 12726090 (Version 1)
Quarter: 2016Q3

REPORT INFORMATION
  Report Type: Spontaneous
  Country: GB (occurrence: GB)
  Receive Date: 20160908
  Receipt Date: 20160908
  Transmission Date: 20161109
  Serious: Yes (Life-Threatening)
  Sender: FDA-Public Use
  Company Number: GB-MYLANLABS-2016M1037369

PATIENT

DRUGS (7)
  1. CIPROFLOXACIN. [Suspect]
     Active Substance: CIPROFLOXACIN
     Indication: BILIARY DILATATION
     Dosage: 400 MG, BID
     Route: 040
     Dates: start: 20160809, end: 20160813
  2. FUCITHALMIC [Concomitant]
     Active Substance: FUSIDIC ACID
     Dosage: 1 GTT, BID
     Route: 061
  3. ENOXAPARIN [Concomitant]
     Active Substance: ENOXAPARIN
     Dosage: 20 MG, QD
     Route: 058
  4. HYDROCORTISONE. [Concomitant]
     Active Substance: HYDROCORTISONE
     Dosage: 100 MG, QID (DOSE NOT CHANGED)
     Route: 041
  5. LACTULOSE. [Concomitant]
     Active Substance: LACTULOSE
     Dosage: 30 ML, BID
     Route: 048
  6. RANITIDINE. [Concomitant]
     Active Substance: RANITIDINE
     Dosage: 50 MG, BID
     Route: 040
  7. METRONIDAZOLE. [Concomitant]
     Active Substance: METRONIDAZOLE
     Indication: BILIARY DILATATION
     Dosage: 500 MG, TID (DRUG WITHDRAWN)
     Route: 040

REACTIONS (7)
  - Jaundice [Unknown]
  - Condition aggravated [Unknown]
  - Hepatotoxicity [Not Recovered/Not Resolved]
  - Alanine aminotransferase increased [Unknown]
  - Malaise [Unknown]
  - Liver function test abnormal [Unknown]
  - Confusional state [Unknown]

NARRATIVE: CASE EVENT DATE: 20160811
